FAERS Safety Report 26146752 (Version 1)
Quarter: 2025Q4

REPORT INFORMATION
  Report Type: Spontaneous
  Country: EU (occurrence: EU)
  Receive Date: 20251211
  Receipt Date: 20251211
  Transmission Date: 20260117
  Serious: Yes (Hospitalization, Other)
  Sender: GILEAD
  Company Number: None

PATIENT
  Age: 22 Year
  Sex: Male
  Weight: 74 kg

DRUGS (1)
  1. YESCARTA [Suspect]
     Active Substance: AXICABTAGENE CILOLEUCEL
     Indication: B-cell lymphoma refractory
     Dosage: UNK
     Route: 042
     Dates: start: 20251014, end: 20251014

REACTIONS (6)
  - Klebsiella infection [Recovered/Resolved]
  - Cytomegalovirus infection reactivation [Recovering/Resolving]
  - Urinary tract infection [Recovering/Resolving]
  - Encephalitis [Recovering/Resolving]
  - Cytokine release syndrome [Recovering/Resolving]
  - Immune effector cell-associated neurotoxicity syndrome [Recovering/Resolving]

NARRATIVE: CASE EVENT DATE: 20251015
